FAERS Safety Report 25396975 (Version 2)
Quarter: 2025Q2

REPORT INFORMATION
  Report Type: Report from Study
  Country: CA (occurrence: CA)
  Receive Date: 20250604
  Receipt Date: 20250620
  Transmission Date: 20250717
  Serious: Yes (Hospitalization, Other)
  Sender: MYLAN
  Company Number: CA-MYLANLABS-2025M1033877

PATIENT
  Age: 56 Year
  Sex: Female

DRUGS (5)
  1. CLOZAPINE [Suspect]
     Active Substance: CLOZAPINE
     Indication: Bipolar disorder
     Dosage: 100 MILLIGRAM, PM (EVERY NIGHT AT BEDTIME) (START DATE: ON OR ABOUT 8-MAR-25)
     Dates: start: 202503
  2. CLOZAPINE [Suspect]
     Active Substance: CLOZAPINE
     Indication: Psychotic disorder
  3. CLOZAPINE [Suspect]
     Active Substance: CLOZAPINE
     Indication: Presenile dementia
  4. QUETIAPINE [Concomitant]
     Active Substance: QUETIAPINE
  5. DIVALPROEX SODIUM [Concomitant]
     Active Substance: DIVALPROEX SODIUM

REACTIONS (3)
  - Myocarditis [Recovering/Resolving]
  - Pancreatitis [Recovering/Resolving]
  - Off label use [Unknown]

NARRATIVE: CASE EVENT DATE: 20250301
